FAERS Safety Report 8349513-0 (Version None)
Quarter: 2012Q2

REPORT INFORMATION
  Report Type: 
  Country: None (occurrence: None)
  Receive Date: 20120510
  Receipt Date: 20120430
  Transmission Date: 20120825
  Serious: Yes (Death, Hospitalization, Other)
  Sender: FDA-Public Use
  Company Number: US-SANOFI-AVENTIS-2012SA022202

PATIENT
  Age: 74 Year
  Sex: Male
  Weight: 68.93 kg

DRUGS (19)
  1. DOCETAXEL [Suspect]
     Indication: NON-SMALL CELL LUNG CANCER STAGE IV
     Route: 041
     Dates: start: 20120313
  2. NEXIUM [Concomitant]
     Dates: start: 20110726
  3. SERTRALINE HYDROCHLORIDE [Concomitant]
     Indication: DEPRESSION
     Dates: start: 20120313
  4. VALSARTAN [Concomitant]
  5. BLINDED THERAPY [Suspect]
     Indication: NON-SMALL CELL LUNG CANCER STAGE IV
     Route: 042
     Dates: start: 20120313, end: 20120313
  6. MEGESTROL ACETATE [Concomitant]
     Indication: DECREASED APPETITE
     Dates: start: 20120131
  7. DEXAMETHASONE [Concomitant]
     Indication: PREMEDICATION
  8. ASPIRIN [Concomitant]
  9. MULTI-VITAMINS [Concomitant]
     Indication: VITAMIN SUPPLEMENTATION
  10. LORAZEPAM [Concomitant]
     Indication: ANXIETY
     Dates: start: 20110426
  11. GRANISETRON [Concomitant]
     Indication: PREMEDICATION
  12. VICODIN [Concomitant]
     Indication: PAIN
     Dates: start: 20110426
  13. SUCRALFATE [Concomitant]
     Indication: ULCER
     Dates: start: 20120228
  14. FENOFIBRATE [Concomitant]
  15. METFORMIN HCL [Concomitant]
     Indication: HYPERTENSION
  16. CALCIUM CARBONATE/ERGOCALCIFEROL [Concomitant]
     Indication: NUTRITIONAL SUPPORT
  17. LACTULOSE [Concomitant]
     Indication: CONSTIPATION
     Dates: start: 20110628
  18. AMBIEN [Concomitant]
  19. DIPHENHYDRAMINE HCL [Concomitant]
     Indication: PREMEDICATION

REACTIONS (10)
  - DIARRHOEA [None]
  - RASH [None]
  - NEUTROPENIC SEPSIS [None]
  - DEHYDRATION [None]
  - DECREASED APPETITE [None]
  - NAUSEA [None]
  - VOMITING [None]
  - PAIN [None]
  - DIARRHOEA HAEMORRHAGIC [None]
  - PNEUMONIA [None]
